FAERS Safety Report 5344869-5 (Version None)
Quarter: 2007Q2

REPORT INFORMATION
  Report Type: 
  Country: None (occurrence: None)
  Receive Date: 20070416
  Receipt Date: 20070114
  Transmission Date: 20071010
  Serious: No
  Sender: FDA-Public Use
  Company Number: 2007SP000198

PATIENT
  Age: 41 Year
  Sex: Male
  Weight: 77.1115 kg

DRUGS (7)
  1. LUNESTA [Suspect]
     Indication: INSOMNIA
     Dosage: 2 MG;ORAL
     Route: 048
     Dates: start: 20070112, end: 20070101
  2. NORCO [Concomitant]
  3. HEPSERA [Concomitant]
  4. LORATADINE [Concomitant]
  5. METOCLOPRAMIDE [Concomitant]
  6. MULTIVITAMIN [Concomitant]
  7. PROMETHAZINE [Concomitant]

REACTIONS (3)
  - DRUG INEFFECTIVE [None]
  - INFLUENZA [None]
  - INSOMNIA [None]
